FAERS Safety Report 15352907 (Version 1)
Quarter: 2018Q3

REPORT INFORMATION
  Report Type: Spontaneous
  Country: FR (occurrence: FR)
  Receive Date: 20180905
  Receipt Date: 20180905
  Transmission Date: 20181010
  Serious: Yes (Hospitalization)
  Sender: FDA-Public Use
  Company Number: FR-TAKEDA-2018MPI011139

PATIENT
  Age: 67 Year
  Sex: Female
  Weight: 63 kg

DRUGS (14)
  1. VELCADE [Suspect]
     Active Substance: BORTEZOMIB
     Indication: PLASMA CELL MYELOMA
     Dosage: 2.3 MG, UNK
     Route: 042
     Dates: start: 20180109
  2. ALKERAN [Suspect]
     Active Substance: MELPHALAN
     Indication: BONE MARROW CONDITIONING REGIMEN
     Dosage: 355 MG, QD
     Route: 042
     Dates: start: 20180205
  3. MORPHINE [Concomitant]
     Active Substance: MORPHINE
     Dosage: UNK
     Route: 065
  4. ZOVIRAX [Concomitant]
     Active Substance: ACYCLOVIR
     Dosage: UNK
     Route: 065
  5. ZOPHREN                            /00955301/ [Concomitant]
     Active Substance: ONDANSETRON
     Dosage: UNK
     Route: 065
  6. FOLINATE DE CALCIUM [Concomitant]
     Active Substance: LEUCOVORIN CALCIUM
     Dosage: UNK
     Route: 065
  7. BACTRIM [Concomitant]
     Active Substance: SULFAMETHOXAZOLE\TRIMETHOPRIM
     Dosage: UNK
     Route: 065
  8. TIORFAN [Concomitant]
     Active Substance: RACECADOTRIL
     Dosage: UNK
     Route: 065
  9. DEXAMETHASONE. [Suspect]
     Active Substance: DEXAMETHASONE
     Indication: PLASMA CELL MYELOMA
     Dosage: 40 MG, UNK
     Route: 042
     Dates: start: 20180109
  10. REVLIMID [Suspect]
     Active Substance: LENALIDOMIDE
     Indication: PLASMA CELL MYELOMA
     Dosage: 150 MG, QD
     Route: 048
     Dates: start: 20180109
  11. INEXIUM                            /01479302/ [Concomitant]
     Active Substance: ESOMEPRAZOLE MAGNESIUM
     Dosage: UNK
     Route: 065
  12. ACUPAN [Concomitant]
     Active Substance: NEFOPAM HYDROCHLORIDE
     Dosage: UNK
     Route: 065
  13. LORAMYC [Concomitant]
     Active Substance: MICONAZOLE
     Dosage: UNK
     Route: 065
  14. LOVENOX [Concomitant]
     Active Substance: ENOXAPARIN SODIUM
     Dosage: UNK
     Route: 065

REACTIONS (2)
  - Infection in an immunocompromised host [Recovered/Resolved]
  - Mucosal inflammation [Recovered/Resolved]

NARRATIVE: CASE EVENT DATE: 20180209
